FAERS Safety Report 4510064-2 (Version None)
Quarter: 2004Q4

REPORT INFORMATION
  Report Type: 
  Country: None (occurrence: None)
  Receive Date: 20041110
  Receipt Date: 20041109
  Transmission Date: 20050328
  Serious: Yes (Hospitalization)
  Sender: FDA-Public Use
  Company Number: STA-AE-04-MTX-555

PATIENT
  Age: 85 Year
  Sex: Female

DRUGS (3)
  1. METHOTREXATE [Suspect]
     Indication: RHEUMATOID ARTHRITIS
     Dosage: 75 MG 1X PER 1 WK, ORAL
     Route: 048
     Dates: start: 20041026
  2. RISEDRONATE SODIUM [Concomitant]
  3. ASPIRIN [Concomitant]

REACTIONS (2)
  - BONE MARROW DEPRESSION [None]
  - RESPIRATORY DISTRESS [None]
